FAERS Safety Report 9925234 (Version 2)
Quarter: 2014Q1

REPORT INFORMATION
  Report Type: Spontaneous
  Country: US (occurrence: US)
  Receive Date: 20140226
  Receipt Date: 20140226
  Transmission Date: 20141002
  Serious: Yes (Other)
  Sender: FDA-Public Use
  Company Number: US-BRACCO-009212

PATIENT
  Sex: Male

DRUGS (1)
  1. ISOVUE 370 [Suspect]
     Indication: CATHETERISATION CARDIAC
     Route: 042
     Dates: start: 201302, end: 201302

REACTIONS (1)
  - Dyspnoea [Recovered/Resolved]
